FAERS Safety Report 4346383-2 (Version None)
Quarter: 2004Q2

REPORT INFORMATION
  Report Type: 
  Country: None (occurrence: None)
  Receive Date: 20040426
  Receipt Date: 20030610
  Transmission Date: 20050107
  Serious: No
  Sender: FDA-Public Use
  Company Number: US-GLAXOSMITHKLINE-A0411642A

PATIENT
  Age: 35 Year
  Sex: Female

DRUGS (3)
  1. ZOFRAN [Suspect]
     Indication: NAUSEA
     Dosage: 4MG THREE TIMES PER DAY
     Route: 048
     Dates: start: 20030604, end: 20030606
  2. UNKNOWN MEDICATION [Concomitant]
     Route: 048
  3. SUDAFED S.A. [Concomitant]
     Route: 048

REACTIONS (3)
  - CONSTIPATION [None]
  - DRUG EXPOSURE DURING PREGNANCY [None]
  - INTESTINAL OBSTRUCTION [None]
